FAERS Safety Report 8806290 (Version 1)
Quarter: 2012Q4

REPORT INFORMATION
  Report Type: 
  Country: BR (occurrence: BR)
  Receive Date: 20120925
  Receipt Date: 20120925
  Transmission Date: 20130627
  Serious: Yes (Other)
  Sender: FDA-Public Use
  Company Number: BR-ASTRAZENECA-2012SE72333

PATIENT
  Age: 64 Year
  Sex: Female
  Weight: 49.5 kg

DRUGS (4)
  1. ARIMIDEX [Suspect]
     Indication: BREAST CANCER
     Dosage: DAILY
     Route: 048
     Dates: start: 20110630
  2. TAMOXIFEN [Suspect]
     Indication: BREAST CANCER
     Route: 048
     Dates: start: 200806, end: 20110630
  3. LEXAPRO [Concomitant]
     Indication: ANTIDEPRESSANT THERAPY
     Dosage: DAILY
     Route: 048
  4. CALTRATE [Concomitant]
     Indication: MINERAL SUPPLEMENTATION
     Dosage: 600mg + 200Ul, DAILY
     Route: 048

REACTIONS (4)
  - Breast mass [Unknown]
  - Arthralgia [Unknown]
  - Trigger finger [Unknown]
  - Arthralgia [Unknown]
